FAERS Safety Report 13521280 (Version 1)
Quarter: 2017Q2

REPORT INFORMATION
  Report Type: Spontaneous
  Country: US (occurrence: US)
  Receive Date: 20170505
  Receipt Date: 20170505
  Transmission Date: 20170830
  Serious: Yes (Disabling, Other)
  Sender: FDA-Public Use
  Company Number: None

PATIENT
  Age: 38 Year
  Sex: Female
  Weight: 63 kg

DRUGS (2)
  1. DEPO-PROVERA [Suspect]
     Active Substance: MEDROXYPROGESTERONE ACETATE
     Indication: CONTRACEPTION
  2. CHEWABLE VITAMINS [Concomitant]

REACTIONS (9)
  - Abdominal pain upper [None]
  - Vision blurred [None]
  - Gingival recession [None]
  - Bone density decreased [None]
  - Tinnitus [None]
  - Product quality issue [None]
  - Economic problem [None]
  - Tooth loss [None]
  - Headache [None]

NARRATIVE: CASE EVENT DATE: 20160605
